FAERS Safety Report 9684058 (Version 3)
Quarter: 2013Q4

REPORT INFORMATION
  Report Type: Report from Study
  Country: US (occurrence: US)
  Receive Date: 20131112
  Receipt Date: 20131205
  Transmission Date: 20140711
  Serious: Yes (Hospitalization)
  Sender: FDA-Public Use
  Company Number: US-ACTELION-A-US2011-56516

PATIENT
  Age: 68 Year
  Sex: Female

DRUGS (4)
  1. TRACLEER [Suspect]
     Indication: PULMONARY ARTERIAL HYPERTENSION
     Dosage: UNK
     Route: 048
     Dates: start: 2011
  2. WARFARIN [Concomitant]
  3. ASA [Concomitant]
  4. OXYGEN [Concomitant]

REACTIONS (6)
  - Extrasystoles [Unknown]
  - Cardiac disorder [Unknown]
  - Dizziness [Unknown]
  - Anaemia [Unknown]
  - Iron deficiency [Unknown]
  - Continuous positive airway pressure [Unknown]
